FAERS Safety Report 8319376 (Version 9)
Quarter: 2012Q4

REPORT INFORMATION
  Report Type: 
  Country: JP (occurrence: JP)
  Receive Date: 20120103
  Receipt Date: 20121228
  Transmission Date: 20130627
  Serious: Yes (Hospitalization)
  Sender: FDA-Public Use
  Company Number: JP-ABBOTT-11P-087-0886801-00

PATIENT
  Sex: Male
  Weight: 60.3 kg

DRUGS (14)
  1. HUMIRA [Suspect]
     Indication: CROHN^S DISEASE
     Route: 058
     Dates: start: 20110210, end: 20110210
  2. HUMIRA [Suspect]
     Dates: start: 20110224, end: 20110224
  3. HUMIRA [Suspect]
     Dates: start: 20110306, end: 20120610
  4. MESALAZINE [Concomitant]
     Indication: CROHN^S DISEASE
     Dosage: 1.5g daily
     Route: 048
  5. LANSOPRAZOLE [Concomitant]
     Indication: GASTRITIS PROPHYLAXIS
     Dosage: 15mg daily
     Route: 048
  6. SULFAMETHOXAZOLE W/TRIMETHOPRIM [Concomitant]
     Indication: PROPHYLAXIS
     Route: 048
  7. SULFAMETHOXAZOLE W/TRIMETHOPRIM [Concomitant]
     Indication: PNEUMOCYSTIS JIROVECI PNEUMONIA
  8. ALENDRONATE SODIUM [Concomitant]
     Indication: OSTEOPOROSIS PROPHYLAXIS
     Route: 048
  9. ATORVASTATIN CALCIUM [Concomitant]
     Indication: DYSLIPIDAEMIA
     Dosage: 10mg daily
     Route: 048
     Dates: start: 20110210
  10. PREDNISOLONE [Concomitant]
     Indication: CHRONIC INFLAMMATORY DEMYELINATING POLYRADICULONEUROPATHY
     Dosage: 60 mg
     Route: 048
     Dates: start: 20100827
  11. PREDNISOLONE [Concomitant]
     Dosage: 50 mg
     Dates: start: 20100924
  12. PREDNISOLONE [Concomitant]
     Dosage: 40 mg
     Dates: start: 20111008
  13. PREDNISOLONE [Concomitant]
     Dosage: 35 mg
     Dates: start: 20101022
  14. PREDNISOLONE [Concomitant]
     Dosage: 11 mg
     Dates: start: 201108

REACTIONS (3)
  - Chronic inflammatory demyelinating polyradiculoneuropathy [Recovered/Resolved with Sequelae]
  - Abdominal pain [Unknown]
  - Crohn^s disease [Unknown]
